FAERS Safety Report 10343927 (Version 1)
Quarter: 2014Q3

REPORT INFORMATION
  Report Type: Spontaneous
  Country: US (occurrence: None)
  Receive Date: 20140724
  Receipt Date: 20140724
  Transmission Date: 20150326
  Serious: Yes (Disabling, Other)
  Sender: FDA-Public Use
  Company Number: None

PATIENT
  Age: 61 Year
  Sex: Female

DRUGS (4)
  1. CENTRUM SILVER [Concomitant]
     Active Substance: VITAMINS
  2. ENALAPRIL [Concomitant]
     Active Substance: ENALAPRIL
  3. ANASTRAZOLE [Suspect]
     Active Substance: ANASTROZOLE
  4. LETROZOLE 2.5 MG [Suspect]
     Active Substance: LETROZOLE
     Indication: RECURRENT CANCER
     Route: 048
     Dates: start: 201402

REACTIONS (2)
  - Arthralgia [None]
  - Bone pain [None]

NARRATIVE: CASE EVENT DATE: 201402
